FAERS Safety Report 8813994 (Version 1)
Quarter: 2012Q4

REPORT INFORMATION
  Report Type: 
  Country: US (occurrence: US)
  Receive Date: 20120928
  Receipt Date: 20120928
  Transmission Date: 20130627
  Serious: Yes (Other)
  Sender: FDA-Public Use
  Company Number: US-MERCK-1209USA011042

PATIENT
  Age: 59 Year
  Sex: Female

DRUGS (1)
  1. ZOLINZA [Suspect]
     Indication: ANGIOIMMUNOBLASTIC T-CELL LYMPHOMA RECURRENT
     Dosage: 400 mg, qd
     Route: 048

REACTIONS (1)
  - B-cell lymphoma [Unknown]
